FAERS Safety Report 5432258-4 (Version None)
Quarter: 2007Q3

REPORT INFORMATION
  Report Type: 
  Country: None (occurrence: None)
  Receive Date: 20070830
  Receipt Date: 20070821
  Transmission Date: 20080115
  Serious: Yes (Hospitalization, Other)
  Sender: FDA-Public Use
  Company Number: US-PFIZER INC-2007069988

PATIENT

DRUGS (1)
  1. LIPITOR [Suspect]

REACTIONS (2)
  - AMNESIA [None]
  - DISORIENTATION [None]
